FAERS Safety Report 8596971 (Version 4)
Quarter: 2012Q4

REPORT INFORMATION
  Report Type: Spontaneous
  Country: US (occurrence: None)
  Receive Date: 20120524
  Receipt Date: 20121011
  Transmission Date: 20130627
  Serious: Yes (Other)
  Sender: FDA-Public Use
  Company Number: JPI-P-017996

PATIENT
  Age: 31 Year
  Sex: Female
  Weight: 90.72 kg

DRUGS (21)
  1. XYREM [Suspect]
     Indication: SLEEP DISORDER
     Dosage: 4.5 gm (2.25 gm, 2 in 1 D), Oral
     Dates: start: 20111027, end: 20111108
  2. XYREM [Suspect]
     Indication: NARCOLEPSY
     Dosage: 4.5 gm (2.25 gm, 2 in 1 D), Oral
     Dates: start: 20111027, end: 20111108
  3. XYREM [Suspect]
     Indication: SLEEP APNOEA SYNDROME
     Dosage: 4.5 gm (2.25 gm, 2 in 1 D), Oral
     Dates: start: 20111027, end: 20111108
  4. XYREM [Suspect]
     Indication: SLEEP DISORDER
     Dosage: 8 gm (4 gm, 2 in 1 D), Oral
     Dates: start: 20111222, end: 20111226
  5. XYREM [Suspect]
     Indication: NARCOLEPSY
     Dosage: 8 gm (4 gm, 2 in 1 D), Oral
     Dates: start: 20111222, end: 20111226
  6. XYREM [Suspect]
     Indication: SLEEP APNOEA SYNDROME
     Dosage: 8 gm (4 gm, 2 in 1 D), Oral
     Dates: start: 20111222, end: 20111226
  7. XYREM [Suspect]
     Indication: SLEEP DISORDER
     Dosage: 9 gm (4.5 gm, 2 in 1 D), Oral
     Dates: start: 20120110, end: 2012
  8. XYREM [Suspect]
     Indication: NARCOLEPSY
     Dosage: 9 gm (4.5 gm, 2 in 1 D), Oral
     Dates: start: 20120110, end: 2012
  9. XYREM [Suspect]
     Indication: SLEEP APNOEA SYNDROME
     Dosage: 9 gm (4.5 gm, 2 in 1 D), Oral
     Dates: start: 20120110, end: 2012
  10. XYREM [Suspect]
     Indication: SLEEP DISORDER
     Dosage: 8 gm (4 gm, 2 in 1 D), Oral
     Dates: start: 2012
  11. XYREM [Suspect]
     Indication: NARCOLEPSY
     Dosage: 8 gm (4 gm, 2 in 1 D), Oral
     Dates: start: 2012
  12. XYREM [Suspect]
     Indication: SLEEP APNOEA SYNDROME
     Dosage: 8 gm (4 gm, 2 in 1 D), Oral
     Dates: start: 2012
  13. XYREM [Suspect]
     Indication: SLEEP DISORDER
  14. XYREM [Suspect]
     Indication: NARCOLEPSY
  15. XYREM [Suspect]
     Indication: SLEEP APNOEA SYNDROME
  16. XYREM [Suspect]
     Indication: SLEEP DISORDER
  17. XYREM [Suspect]
     Indication: NARCOLEPSY
  18. XYREM [Suspect]
     Indication: SLEEP APNOEA SYNDROME
  19. XYREM (500 MILLIGRAM/MILLILITERS, SOLUTION) (SODIUM OXYBATE) [Suspect]
     Indication: NARCOLEPSY
     Dosage: 6 gm (3 gm, 2 in 1 D), Oral
     Dates: start: 20111109, end: 2011
  20. XYREM (500 MILLIGRAM/MILLILITERS, SOLUTION) (SODIUM OXYBATE) [Suspect]
     Indication: OBSTRUCTIVE SLEEP APNEA SYNDROME
     Dosage: 4.5 gm (2.25 gm, 2 in 1 D), Oral
     Dates: start: 2011, end: 20111221
  21. BUPRENORPHINE HCL W/NALOXONE HCL [Concomitant]

REACTIONS (11)
  - Anxiety [None]
  - Tachycardia [None]
  - Muscle twitching [None]
  - Nightmare [None]
  - Neck pain [None]
  - Intervertebral disc protrusion [None]
  - Feeling jittery [None]
  - Irritability [None]
  - Hallucination [None]
  - Fatigue [None]
  - Hypersensitivity [None]
